FAERS Safety Report 22352388 (Version 1)
Quarter: 2023Q2

REPORT INFORMATION
  Report Type: Spontaneous
  Country: US (occurrence: US)
  Receive Date: 20230522
  Receipt Date: 20230522
  Transmission Date: 20230722
  Serious: No
  Sender: FDA-Public Use
  Company Number: US-Teikoku Pharma USA-TPU2023-00292

PATIENT
  Sex: Female

DRUGS (4)
  1. LIDOCAINE PATCH [Suspect]
     Active Substance: LIDOCAINE
     Indication: Product used for unknown indication
  2. Endocet 5/325mg [Concomitant]
     Indication: Arthritis
     Dates: start: 2013
  3. Endocet 5/325mg [Concomitant]
     Indication: Back pain
  4. Endocet 5/325mg [Concomitant]
     Indication: Hip arthroplasty

REACTIONS (1)
  - Drug ineffective for unapproved indication [Unknown]
